FAERS Safety Report 7112492-8 (Version None)
Quarter: 2010Q4

REPORT INFORMATION
  Report Type: 
  Country: None (occurrence: None)
  Receive Date: 20101119
  Receipt Date: 20101110
  Transmission Date: 20110411
  Serious: Yes (Other)
  Sender: FDA-Public Use
  Company Number: AU-BAYER-201041409GPV

PATIENT
  Age: 31 Year
  Sex: Female

DRUGS (1)
  1. MIRENA [Suspect]
     Indication: MENORRHAGIA
     Route: 015
     Dates: start: 20091201

REACTIONS (7)
  - ACNE [None]
  - ALOPECIA [None]
  - AXILLARY PAIN [None]
  - HEADACHE [None]
  - LYMPHADENOPATHY [None]
  - NECK PAIN [None]
  - RASH [None]
